FAERS Safety Report 11105021 (Version 1)
Quarter: 2015Q2

REPORT INFORMATION
  Report Type: Spontaneous
  Country: US (occurrence: US)
  Receive Date: 20150511
  Receipt Date: 20150511
  Transmission Date: 20150821
  Serious: Yes (Hospitalization)
  Sender: FDA-Public Use
  Company Number: US-SA-2015SA060859

PATIENT
  Age: 55 Year
  Sex: Female

DRUGS (1)
  1. NASACORT ALLERGY 24HR [Suspect]
     Active Substance: TRIAMCINOLONE ACETONIDE
     Indication: HYPERSENSITIVITY
     Dosage: DOSE: 2 PUFFS/ 55MG?PRODCUT STOPPED WEEK AGO FRI
     Route: 065
     Dates: end: 2015

REACTIONS (10)
  - Chest pain [Unknown]
  - Ear pain [Unknown]
  - Cardiac disorder [Unknown]
  - Pyrexia [Unknown]
  - Hypoaesthesia [Unknown]
  - Ear discomfort [Unknown]
  - Dyspnoea [Unknown]
  - Eye inflammation [Unknown]
  - Visual acuity reduced [Unknown]
  - Hypertension [Unknown]

NARRATIVE: CASE EVENT DATE: 2015
